FAERS Safety Report 7772516-1 (Version None)
Quarter: 2011Q3

REPORT INFORMATION
  Report Type: 
  Country: None (occurrence: None)
  Receive Date: 20110922
  Receipt Date: 20110510
  Transmission Date: 20111222
  Serious: No
  Sender: FDA-Public Use
  Company Number: US-ASTRAZENECA-2011SE27883

PATIENT
  Age: 59 Year
  Sex: Male

DRUGS (2)
  1. VICODIN [Concomitant]
     Indication: PAIN
  2. SEROQUEL XR [Suspect]
     Indication: MAJOR DEPRESSION
     Route: 048
     Dates: start: 20090101, end: 20110501

REACTIONS (7)
  - WRONG TECHNIQUE IN DRUG USAGE PROCESS [None]
  - DRUG DOSE OMISSION [None]
  - DEPRESSED MOOD [None]
  - FEELING ABNORMAL [None]
  - DEPRESSION [None]
  - FEELING JITTERY [None]
  - DIZZINESS [None]
